FAERS Safety Report 15746621 (Version 2)
Quarter: 2019Q2

REPORT INFORMATION
  Report Type: Spontaneous
  Country: US (occurrence: US)
  Receive Date: 20181220
  Receipt Date: 20190628
  Transmission Date: 20190711
  Serious: No
  Sender: FDA-Public Use
  Company Number: US-PRINSTON PHARMACEUTICAL INC.-2018PRN01353

PATIENT
  Sex: Female
  Weight: 50.79 kg

DRUGS (3)
  1. AMOLODIPINE BESTYLATE [Concomitant]
     Dosage: ^LOWER DOSE^
  2. AMOLODIPINE BESTYLATE [Concomitant]
     Dosage: 10 MG
  3. VALSARTAN. [Suspect]
     Active Substance: VALSARTAN
     Indication: HYPERTENSION
     Dosage: 40 MG, 1X/DAY
     Route: 048
     Dates: start: 201803, end: 201803

REACTIONS (6)
  - Pain in extremity [Not Recovered/Not Resolved]
  - Skin discolouration [Not Recovered/Not Resolved]
  - Bone density decreased [Not Recovered/Not Resolved]
  - Localised infection [Recovering/Resolving]
  - Blood pressure increased [Recovered/Resolved]
  - Pollakiuria [Not Recovered/Not Resolved]

NARRATIVE: CASE EVENT DATE: 2018
